FAERS Safety Report 20977253 (Version 1)
Quarter: 2022Q2

REPORT INFORMATION
  Report Type: Report from Study
  Country: CA (occurrence: CA)
  Receive Date: 20220617
  Receipt Date: 20220617
  Transmission Date: 20220721
  Serious: Yes (Hospitalization)
  Sender: FDA-Public Use
  Company Number: CA-JNJFOC-20220532756

PATIENT
  Age: 20 Year
  Sex: Male
  Weight: 90 kg

DRUGS (2)
  1. REMICADE [Suspect]
     Active Substance: INFLIXIMAB
     Indication: Crohn^s disease
     Dosage: RECEIVED INFUSION ON 07-OCT-2021?ON 10-JUN-2022, THE PATIENT HAD COMPLETED PARTIAL HARVEY-BRADSHAW.
     Route: 042
     Dates: start: 20210923
  2. REMICADE [Suspect]
     Active Substance: INFLIXIMAB
     Indication: Colitis ulcerative
     Route: 042

REACTIONS (7)
  - Intestinal resection [Recovering/Resolving]
  - Urostomy [Unknown]
  - Post procedural haemorrhage [Unknown]
  - General physical health deterioration [Unknown]
  - Abdominal pain [Unknown]
  - Drug ineffective [Unknown]
  - Diarrhoea [Unknown]

NARRATIVE: CASE EVENT DATE: 20220502
